FAERS Safety Report 16478191 (Version 1)
Quarter: 2019Q2

REPORT INFORMATION
  Report Type: Spontaneous
  Country: CA (occurrence: CA)
  Receive Date: 20190626
  Receipt Date: 20190626
  Transmission Date: 20190711
  Serious: Yes (Hospitalization)
  Sender: FDA-Public Use
  Company Number: CA-PFIZER INC-2018220549

PATIENT
  Age: 66 Year
  Sex: Female

DRUGS (2)
  1. FRAGMIN [Suspect]
     Active Substance: DALTEPARIN SODIUM
     Indication: EMBOLISM
     Dosage: 25000  IU, UNK
  2. FRAGMIN [Suspect]
     Active Substance: DALTEPARIN SODIUM
     Indication: PULMONARY EMBOLISM
     Dosage: 20 MG, 1X/DAY
     Dates: start: 20180323, end: 20180702

REACTIONS (3)
  - Overdose [Unknown]
  - Peripheral swelling [Unknown]
  - Injection site mass [Not Recovered/Not Resolved]
